FAERS Safety Report 21101409 (Version 2)
Quarter: 2022Q3

REPORT INFORMATION
  Report Type: Spontaneous
  Country: JP (occurrence: JP)
  Receive Date: 20220719
  Receipt Date: 20220801
  Transmission Date: 20221026
  Serious: Yes (Death)
  Sender: FDA-Public Use
  Company Number: JP-TEVA-2022-JP-2055629

PATIENT
  Age: 40 Year
  Sex: Female

DRUGS (3)
  1. CARBOPLATIN [Suspect]
     Active Substance: CARBOPLATIN
     Indication: Cervix carcinoma
     Route: 065
  2. PACLITAXEL [Suspect]
     Active Substance: PACLITAXEL
     Indication: Cervix carcinoma
     Route: 065
  3. BEVACIZUMAB [Suspect]
     Active Substance: BEVACIZUMAB
     Indication: Cervix carcinoma
     Route: 065

REACTIONS (1)
  - Drug ineffective [Fatal]
